FAERS Safety Report 9894396 (Version 1)
Quarter: 2014Q1

REPORT INFORMATION
  Report Type: Spontaneous
  Country: ES (occurrence: ES)
  Receive Date: 20140213
  Receipt Date: 20140213
  Transmission Date: 20141002
  Serious: Yes (Other)
  Sender: FDA-Public Use
  Company Number: ES-TEVA-460901ISR

PATIENT
  Age: 38 Year
  Sex: Female

DRUGS (3)
  1. AMOXICILINA [Suspect]
     Indication: HELICOBACTER INFECTION
     Route: 048
     Dates: start: 201401, end: 201401
  2. OMEPRAZOLE [Concomitant]
  3. CLARITHROMYCIN [Concomitant]

REACTIONS (2)
  - Chest pain [Recovered/Resolved]
  - Rash [Recovered/Resolved]
